FAERS Safety Report 17453645 (Version 1)
Quarter: 2020Q1

REPORT INFORMATION
  Report Type: Spontaneous
  Country: CA (occurrence: CA)
  Receive Date: 20200224
  Receipt Date: 20200224
  Transmission Date: 20200409
  Serious: Yes (Other)
  Sender: FDA-Public Use
  Company Number: CA-CIPHER-2020-CA-000157

PATIENT
  Sex: Female
  Weight: 83 kg

DRUGS (7)
  1. AZATHIOPRINE. [Suspect]
     Active Substance: AZATHIOPRINE
     Indication: PANCREATITIS
  2. IRON [Suspect]
     Active Substance: IRON
     Indication: PANCREATITIS
  3. INFLIXIMAB [Suspect]
     Active Substance: INFLIXIMAB
     Indication: COLITIS ULCERATIVE
  4. TRAMADOL HYDROCHLORIDE. [Suspect]
     Active Substance: TRAMADOL HYDROCHLORIDE
     Indication: PANCREATITIS
  5. MEZAVANT [Suspect]
     Active Substance: MESALAMINE
     Indication: PANCREATITIS
  6. ASACOL [Suspect]
     Active Substance: MESALAMINE
     Indication: PANCREATITIS
  7. PREDNISONE. [Suspect]
     Active Substance: PREDNISONE
     Indication: PANCREATITIS

REACTIONS (1)
  - Pancreatitis [Unknown]
